FAERS Safety Report 7946721-5 (Version None)
Quarter: 2011Q4

REPORT INFORMATION
  Report Type: 
  Country: None (occurrence: None)
  Receive Date: 20111129
  Receipt Date: 20110825
  Transmission Date: 20120403
  Serious: Yes (Other)
  Sender: FDA-Public Use
  Company Number: US-BAYER-2011-078941

PATIENT
  Age: 70 Year
  Sex: Male
  Weight: 91 kg

DRUGS (3)
  1. CIPROFLOXACIN [Concomitant]
     Dosage: 500 MG, BID
     Dates: start: 20110823
  2. ALEVE (CAPLET) [Suspect]
     Dosage: 220 MG, BID
     Route: 048
     Dates: start: 20110823, end: 20110824
  3. LIPITOR [Concomitant]

REACTIONS (3)
  - HYPOAESTHESIA [None]
  - PARAESTHESIA [None]
  - TOOTHACHE [None]
